FAERS Safety Report 9051276 (Version 2)
Quarter: 2013Q1

REPORT INFORMATION
  Report Type: Spontaneous
  Country: JP (occurrence: JP)
  Receive Date: 20130206
  Receipt Date: 20130208
  Transmission Date: 20140127
  Serious: Yes (Other)
  Sender: FDA-Public Use
  Company Number: JP-UCBSA-077316

PATIENT
  Age: 34 Year
  Sex: Male

DRUGS (2)
  1. E KEPPRA [Suspect]
     Route: 048
  2. EXCEGRAN [Concomitant]

REACTIONS (4)
  - Schizophreniform disorder [Unknown]
  - Mania [Unknown]
  - Hallucination [Unknown]
  - Paranoia [Unknown]
